FAERS Safety Report 7146202-5 (Version None)
Quarter: 2010Q4

REPORT INFORMATION
  Report Type: 
  Country: None (occurrence: None)
  Receive Date: 20101208
  Receipt Date: 20101125
  Transmission Date: 20110411
  Serious: Yes (Life-Threatening)
  Sender: FDA-Public Use
  Company Number: GXKR2010PL13383

PATIENT
  Age: 14 Year
  Sex: Male

DRUGS (1)
  1. OMNITROPE [Suspect]
     Indication: HYPOPITUITARISM
     Dosage: 0.03 MG/KG/DOSE DAILY
     Route: 065
     Dates: start: 20070101, end: 20100101

REACTIONS (2)
  - GRANULOMA [None]
  - LYMPHADENOPATHY [None]
